FAERS Safety Report 10792132 (Version 1)
Quarter: 2015Q1

REPORT INFORMATION
  Report Type: Spontaneous
  Country: US (occurrence: US)
  Receive Date: 20150213
  Receipt Date: 20150213
  Transmission Date: 20150721
  Serious: No
  Sender: FDA-Public Use
  Company Number: US-GLAXOSMITHKLINE-A1076183A

PATIENT

DRUGS (2)
  1. NICODERM CQ [Suspect]
     Active Substance: NICOTINE
  2. NICODERM CQ [Suspect]
     Active Substance: NICOTINE
     Indication: EX-TOBACCO USER

REACTIONS (8)
  - Application site haemorrhage [Unknown]
  - Application site scab [Unknown]
  - Application site irritation [Unknown]
  - Application site pruritus [Recovered/Resolved]
  - Application site discomfort [Unknown]
  - Application site rash [Unknown]
  - Application site urticaria [Unknown]
  - Application site erythema [Unknown]
